FAERS Safety Report 9605206 (Version 1)
Quarter: 2013Q4

REPORT INFORMATION
  Report Type: Spontaneous
  Country: GB (occurrence: GB)
  Receive Date: 20131008
  Receipt Date: 20131008
  Transmission Date: 20140711
  Serious: Yes (Other)
  Sender: FDA-Public Use
  Company Number: ALCN2013GB004993

PATIENT
  Age: 75 Year
  Sex: Male
  Weight: 76.5 kg

DRUGS (12)
  1. CIPROFLOXACIN [Suspect]
     Dosage: UNK
     Dates: start: 20120803, end: 20120808
  2. ALPHOSYL [Concomitant]
     Dosage: UNK
     Dates: start: 20120509
  3. ATORVASTATIN [Concomitant]
     Dosage: UNK
     Dates: start: 20120509
  4. CLOPIDOGREL [Concomitant]
     Dosage: UNK
     Dates: start: 20120509
  5. DOXAZOSIN [Concomitant]
     Dosage: UNK
     Dates: start: 20120509
  6. DOXYCYCLINE [Concomitant]
     Dosage: UNK
     Dates: start: 20120803, end: 20120810
  7. FINASTERIDE [Concomitant]
     Dosage: UNK
     Dates: start: 20120509
  8. PREDNISOLONE [Concomitant]
     Dosage: UNK
     Dates: start: 20120803, end: 20120810
  9. SERETIDE [Concomitant]
     Dosage: UNK
     Dates: start: 20120509
  10. TAMSULOSIN HYDROCHLORIDE [Concomitant]
     Dosage: UNK
     Dates: start: 20120529
  11. TILDIEM [Concomitant]
     Dosage: UNK
     Dates: start: 20120509
  12. TIOTROPIUM [Concomitant]
     Dosage: UNK
     Dates: start: 20120509

REACTIONS (2)
  - Dizziness [Recovered/Resolved]
  - Nausea [Recovered/Resolved]
